FAERS Safety Report 24662007 (Version 1)
Quarter: 2024Q4

REPORT INFORMATION
  Report Type: Spontaneous
  Country: US (occurrence: US)
  Receive Date: 20241125
  Receipt Date: 20241125
  Transmission Date: 20250115
  Serious: No
  Sender: CALLIDITAS THERAPEUTICS AB
  Company Number: US-Calliditas-2024CAL02593

PATIENT
  Age: 53 Year
  Sex: Male

DRUGS (10)
  1. TARPEYO [Suspect]
     Active Substance: BUDESONIDE
     Indication: IgA nephropathy
     Route: 048
     Dates: start: 20240911
  2. ALBUTEROL [SALBUTAMOL]albuterol lipitor [Concomitant]
  3. ZETIAalbuterol lipitor [Concomitant]
  4. FLONASE [FLUTICASONE PROPIONATE]albuterol lipitor [Concomitant]
  5. JARDIANCEalbuterol lipitor [Concomitant]
  6. PHENTERMINEalbuterol lipitor [Concomitant]
  7. SEROQUELalbuterol lipitor [Concomitant]
  8. FLOMAX [TAMSULOSIN HYDROCHLORIDE]albuterol lipitor [Concomitant]
  9. TRIAMCINOLONEalbuterol lipitor [Concomitant]
  10. LIPITORalbuterol lipitor [Concomitant]

REACTIONS (6)
  - Eye haemorrhage [Recovering/Resolving]
  - Rash [Recovering/Resolving]
  - Pruritus [Recovering/Resolving]
  - Insomnia [Recovered/Resolved]
  - Blood pressure increased [Not Recovered/Not Resolved]
  - Musculoskeletal discomfort [Not Recovered/Not Resolved]
